FAERS Safety Report 8539789-9 (Version None)
Quarter: 2012Q3

REPORT INFORMATION
  Report Type: 
  Country: None (occurrence: None)
  Receive Date: 20120726
  Receipt Date: 20120723
  Transmission Date: 20120928
  Serious: No
  Sender: FDA-Public Use
  Company Number: US-BAYER-2012-074501

PATIENT
  Sex: Female

DRUGS (1)
  1. ULTRAVIST 150 [Suspect]

REACTIONS (3)
  - EXTRAVASATION [None]
  - OEDEMA PERIPHERAL [None]
  - ERYTHEMA [None]
